FAERS Safety Report 8815986 (Version 1)
Quarter: 2012Q4

REPORT INFORMATION
  Report Type: 
  Country: US (occurrence: US)
  Receive Date: 20120928
  Receipt Date: 20120928
  Transmission Date: 20130627
  Serious: No
  Sender: FDA-Public Use
  Company Number: US-VIIV HEALTHCARE LIMITED-A0948240A

PATIENT
  Age: 55 Year
  Sex: Male

DRUGS (6)
  1. EPZICOM [Suspect]
     Indication: HIV INFECTION
     Dosage: 1TAB Per day
     Route: 048
     Dates: start: 20111006
  2. REYATAZ [Concomitant]
  3. KETOPROFEN [Concomitant]
  4. RANITIDINE [Concomitant]
  5. OXANDROLONE [Concomitant]
  6. MILK THISTLE [Concomitant]

REACTIONS (4)
  - Enlarged uvula [Recovering/Resolving]
  - Dry mouth [Unknown]
  - Dysphonia [Unknown]
  - Throat irritation [Unknown]
